FAERS Safety Report 17518034 (Version 12)
Quarter: 2022Q3

REPORT INFORMATION
  Report Type: Report from Study
  Country: CN (occurrence: CN)
  Receive Date: 20200309
  Receipt Date: 20220704
  Transmission Date: 20221027
  Serious: Yes (Hospitalization)
  Sender: FDA-Public Use
  Company Number: CN-BRISTOL-MYERS SQUIBB COMPANY-BMS-2020-019111

PATIENT
  Age: 66 Year
  Sex: Female
  Weight: 53 kg

DRUGS (10)
  1. IPILIMUMAB [Suspect]
     Active Substance: IPILIMUMAB
     Indication: Renal cell carcinoma
     Dosage: PRIOR TO THE EVENT ONSET, MOST RECENT DOSE ON 26-SEP-2019?MOST RECENT DOSE ON 24-OCT-2019
     Route: 042
     Dates: start: 20190814, end: 20191024
  2. TYLENOL [Concomitant]
     Active Substance: ACETAMINOPHEN
     Indication: Product used for unknown indication
     Dosage: UNK
     Route: 048
     Dates: start: 20191024
  3. DEXTROSE\SODIUM CHLORIDE [Concomitant]
     Active Substance: DEXTROSE\SODIUM CHLORIDE
     Indication: Product used for unknown indication
     Dosage: 1 DOSAGE FORM- 500 UNITS NOS
     Route: 042
     Dates: start: 20191209
  4. NOVOLIN R [Concomitant]
     Active Substance: INSULIN HUMAN
     Indication: Product used for unknown indication
     Dosage: 1 DOSAGE FORM- 4 UNITS NOS
     Route: 042
     Dates: start: 20191209
  5. TROPISETRON HYDROCHLORIDE [Concomitant]
     Active Substance: TROPISETRON HYDROCHLORIDE
     Indication: Product used for unknown indication
     Route: 042
     Dates: start: 20191209
  6. MOSAPRIDE CITRATE [Concomitant]
     Active Substance: MOSAPRIDE CITRATE
     Indication: Product used for unknown indication
     Route: 048
     Dates: start: 20191209
  7. BETAHISTINE MESILATE [Concomitant]
     Active Substance: BETAHISTINE MESILATE
     Indication: Product used for unknown indication
     Dosage: ONGOING
     Route: 048
     Dates: start: 20191215
  8. CEFACLOR [Concomitant]
     Active Substance: CEFACLOR
     Indication: Product used for unknown indication
     Dosage: ONGOING
     Route: 048
     Dates: start: 20191222
  9. PREDNISONE [Concomitant]
     Active Substance: PREDNISONE
     Indication: Product used for unknown indication
     Route: 048
     Dates: start: 20191224
  10. NITROGLYCERIN [Concomitant]
     Active Substance: NITROGLYCERIN
     Indication: Product used for unknown indication
     Route: 048
     Dates: start: 20190928, end: 20200829

REACTIONS (4)
  - Hypertension [Recovered/Resolved]
  - Headache [Not Recovered/Not Resolved]
  - Pyrexia [Recovered/Resolved]
  - Pain in extremity [Recovering/Resolving]

NARRATIVE: CASE EVENT DATE: 20200217
